FAERS Safety Report 16558353 (Version 1)
Quarter: 2019Q3

REPORT INFORMATION
  Report Type: Spontaneous
  Country: CA (occurrence: CA)
  Receive Date: 20190711
  Receipt Date: 20190711
  Transmission Date: 20191004
  Serious: Yes (Other)
  Sender: FDA-Public Use
  Company Number: CA-AUROBINDO-AUR-APL-2019-038682

PATIENT

DRUGS (7)
  1. ENBREL [Suspect]
     Active Substance: ETANERCEPT
     Indication: PRODUCT USED FOR UNKNOWN INDICATION
     Dosage: UNK UNK, EVERY WEEK
     Route: 058
  2. APO-LEFLUNOMIDE [Suspect]
     Active Substance: LEFLUNOMIDE
     Indication: RHEUMATOID ARTHRITIS
     Dosage: UNK
     Route: 065
  3. ZOPICLONE [Concomitant]
     Active Substance: ZOPICLONE
     Indication: INSOMNIA
     Dosage: 7.5 MILLIGRAM
     Route: 065
  4. PLAQUENIL [Suspect]
     Active Substance: HYDROXYCHLOROQUINE SULFATE
     Indication: PRODUCT USED FOR UNKNOWN INDICATION
     Dosage: 300 MILLIGRAM, ONCE A DAY
     Route: 065
  5. REACTINE [Concomitant]
     Indication: PRODUCT USED FOR UNKNOWN INDICATION
     Dosage: 10 MILLIGRAM, ONCE A DAY
     Route: 065
  6. VENLAFAXINE [Suspect]
     Active Substance: VENLAFAXINE HYDROCHLORIDE
     Indication: PRODUCT USED FOR UNKNOWN INDICATION
     Dosage: 100 MILLIGRAM, ONCE A DAY
     Route: 048
  7. ULTRAM [Concomitant]
     Active Substance: TRAMADOL HYDROCHLORIDE
     Indication: PAIN
     Dosage: UNK
     Route: 065

REACTIONS (10)
  - Drug intolerance [Not Recovered/Not Resolved]
  - Anaphylactic shock [Not Recovered/Not Resolved]
  - Rash [Not Recovered/Not Resolved]
  - Therapeutic product effect incomplete [Not Recovered/Not Resolved]
  - Pain [Not Recovered/Not Resolved]
  - Hepatic fibrosis [Not Recovered/Not Resolved]
  - Arthritis [Not Recovered/Not Resolved]
  - Drug hypersensitivity [Not Recovered/Not Resolved]
  - Drug ineffective [Not Recovered/Not Resolved]
  - Insomnia [Not Recovered/Not Resolved]
